FAERS Safety Report 8976621 (Version 1)
Quarter: 2012Q4

REPORT INFORMATION
  Report Type: 
  Country: US (occurrence: US)
  Receive Date: 20121220
  Receipt Date: 20121220
  Transmission Date: 20130627
  Serious: No
  Sender: FDA-Public Use
  Company Number: US-009507513-1212USA006296

PATIENT
  Age: 61 Year
  Sex: Female

DRUGS (2)
  1. MAXALT [Suspect]
     Indication: MIGRAINE
     Dosage: 10 mg, UNK
     Dates: start: 20121213
  2. TRAMADOL HYDROCHLORIDE [Concomitant]

REACTIONS (1)
  - Drug hypersensitivity [Unknown]
